FAERS Safety Report 5040212-X (Version None)
Quarter: 2006Q2

REPORT INFORMATION
  Report Type: 
  Country: None (occurrence: None)
  Receive Date: 20060630
  Receipt Date: 20060626
  Transmission Date: 20061013
  Serious: Yes (Hospitalization)
  Sender: FDA-Public Use
  Company Number: US-SANOFI-SYNTHELABO-F01200601551

PATIENT
  Sex: Female
  Weight: 70 kg

DRUGS (13)
  1. METAMUCIL [Concomitant]
     Dosage: UNK
  2. BENEFIBER [Concomitant]
     Dosage: UNK
  3. FERREX [Concomitant]
     Dosage: UNK
  4. SYNTHROID [Concomitant]
     Dosage: UNK
  5. K-DUR 10 [Concomitant]
     Dosage: UNK
  6. LOTREL [Concomitant]
     Dosage: UNK
  7. METOPROLOL TARTRATE [Concomitant]
     Dosage: UNK
  8. FUROSEMIDE [Concomitant]
     Dosage: UNK
  9. CA/MG OR PLACEBO [Suspect]
     Indication: COLORECTAL CANCER METASTATIC
     Route: 042
     Dates: start: 20060530, end: 20060530
  10. AVASTIN [Suspect]
     Indication: COLORECTAL CANCER METASTATIC
     Route: 042
     Dates: start: 20060612, end: 20060612
  11. LEUCOVORIN CALCIUM [Suspect]
     Indication: COLORECTAL CANCER METASTATIC
     Route: 042
     Dates: start: 20060612, end: 20060612
  12. FLUOROURACIL [Suspect]
     Indication: COLORECTAL CANCER METASTATIC
     Dosage: 2400 MG/M2 IV ON DAY 1 AND DAY 2, Q2W
     Route: 042
     Dates: start: 20060612, end: 20060613
  13. OXALIPLATIN [Suspect]
     Indication: COLORECTAL CANCER METASTATIC
     Route: 042
     Dates: start: 20060530, end: 20060530

REACTIONS (1)
  - FISTULA [None]
